FAERS Safety Report 7152812-1 (Version None)
Quarter: 2010Q4

REPORT INFORMATION
  Report Type: 
  Country: None (occurrence: None)
  Receive Date: 20101213
  Receipt Date: 20101130
  Transmission Date: 20110411
  Serious: Yes (Hospitalization)
  Sender: FDA-Public Use
  Company Number: PHHY2010DE82910

PATIENT
  Sex: Female
  Weight: 16 kg

DRUGS (1)
  1. FTY 720 [Suspect]
     Dosage: 0.5 MG ONCE SINGLE DOSE
     Route: 048
     Dates: start: 20101129, end: 20101129

REACTIONS (1)
  - ACCIDENTAL DRUG INTAKE BY CHILD [None]
